FAERS Safety Report 17499686 (Version 1)
Quarter: 2020Q1

REPORT INFORMATION
  Report Type: Spontaneous
  Country: GB (occurrence: GB)
  Receive Date: 20200305
  Receipt Date: 20200305
  Transmission Date: 20200409
  Serious: Yes (Life-Threatening, Other)
  Sender: FDA-Public Use
  Company Number: GB-TEVA-2020-GB-1194653

PATIENT
  Age: 34 Year
  Sex: Female
  Weight: 79 kg

DRUGS (4)
  1. LANSOPRAZOLE. [Concomitant]
     Active Substance: LANSOPRAZOLE
     Dosage: 1 DF
     Route: 065
     Dates: start: 20200214
  2. DEPO-PROVERA [Concomitant]
     Active Substance: MEDROXYPROGESTERONE ACETATE
     Dosage: USE AS DIRECTED
     Route: 065
     Dates: start: 20200211
  3. NAPROXEN. [Suspect]
     Active Substance: NAPROXEN
     Dosage: 500 MILLIGRAM DAILY; ONE TO BE TAKEN TWICE DAILY
     Route: 065
     Dates: start: 20200214
  4. PHENOXYMETHYLPENICILLIN [Suspect]
     Active Substance: PENICILLIN V
     Dosage: FOR 10 DAYS, 8 DF
     Route: 065
     Dates: start: 20200214

REACTIONS (6)
  - Pruritus [Unknown]
  - Swelling face [Unknown]
  - Lip swelling [Unknown]
  - Hypersensitivity [Recovering/Resolving]
  - Dyspnoea [Unknown]
  - Rash [Unknown]

NARRATIVE: CASE EVENT DATE: 20200214
